FAERS Safety Report 8356343-2 (Version None)
Quarter: 2012Q2

REPORT INFORMATION
  Report Type: 
  Country: None (occurrence: None)
  Receive Date: 20120514
  Receipt Date: 20110420
  Transmission Date: 20120825
  Serious: No
  Sender: FDA-Public Use
  Company Number: US-TEVA-2011001977

PATIENT
  Sex: Male
  Weight: 81.72 kg

DRUGS (3)
  1. CELEXA [Concomitant]
     Indication: ANXIETY
     Dates: start: 20060101
  2. CELEXA [Concomitant]
     Indication: PANIC ATTACK
  3. NUVIGIL [Suspect]
     Indication: HYPERSOMNIA
     Dosage: 250 MILLIGRAM;
     Route: 048
     Dates: start: 20110419

REACTIONS (4)
  - HYPERVIGILANCE [None]
  - LOGORRHOEA [None]
  - PSYCHOMOTOR HYPERACTIVITY [None]
  - NAUSEA [None]
